FAERS Safety Report 10403489 (Version 1)
Quarter: 2014Q3

REPORT INFORMATION
  Report Type: Spontaneous
  Country: FR (occurrence: FR)
  Receive Date: 20140822
  Receipt Date: 20140822
  Transmission Date: 20150326
  Serious: Yes (Disabling, Other)
  Sender: FDA-Public Use
  Company Number: FR-BAXTER-2014BAX048905

PATIENT
  Age: 68 Year
  Sex: Female

DRUGS (20)
  1. HOLOXAN 2000 MG, POUDRE POUR USAGE PARENT?RAL [Suspect]
     Active Substance: IFOSFAMIDE
     Indication: METASTASES TO LUNG
     Dosage: 2ND COURSE
     Route: 042
     Dates: start: 20140314, end: 20140316
  2. HOLOXAN 2000 MG, POUDRE POUR USAGE PARENT?RAL [Suspect]
     Active Substance: IFOSFAMIDE
     Dosage: 3RD COURSE, DECREASED DOSE OF 80%
     Route: 042
     Dates: start: 20140404, end: 20140406
  3. HOLOXAN 2000 MG, POUDRE POUR USAGE PARENT?RAL [Suspect]
     Active Substance: IFOSFAMIDE
     Dosage: 5TH COURSE, DECREASED DOSE OF 80%
     Route: 042
     Dates: start: 20140611, end: 20140612
  4. CISPLATINE TEVA [Suspect]
     Active Substance: CISPLATIN
     Dosage: 3RD COURSE, DECREASES DOSE OF 80%
     Route: 042
     Dates: start: 20140404, end: 20140406
  5. OXYCONTIN [Concomitant]
     Active Substance: OXYCODONE HYDROCHLORIDE
     Indication: PRODUCT USED FOR UNKNOWN INDICATION
     Dosage: MORNING AND EVENING
     Route: 048
  6. TARDYFERON [Concomitant]
     Active Substance: FERROUS SULFATE\FOLIC ACID
     Indication: PRODUCT USED FOR UNKNOWN INDICATION
     Dosage: MORNING
     Route: 048
  7. CISPLATINE TEVA [Suspect]
     Active Substance: CISPLATIN
     Indication: OSTEOSARCOMA METASTATIC
     Dosage: 1ST COURSE
     Route: 042
     Dates: start: 20140221, end: 20140223
  8. LOVENOX [Concomitant]
     Active Substance: ENOXAPARIN SODIUM
     Indication: PRODUCT USED FOR UNKNOWN INDICATION
     Route: 065
  9. PRIMPERAN [Concomitant]
     Active Substance: METOCLOPRAMIDE HYDROCHLORIDE
     Indication: NAUSEA
     Route: 048
  10. HOLOXAN 2000 MG, POUDRE POUR USAGE PARENT?RAL [Suspect]
     Active Substance: IFOSFAMIDE
     Dosage: 4TH COURSE, DECREASED DOSE OF 80%
     Route: 042
     Dates: start: 20140509, end: 20140510
  11. CISPLATINE TEVA [Suspect]
     Active Substance: CISPLATIN
     Dosage: 4 COURSE, DECREASES DOSE OF 80%
     Route: 042
     Dates: start: 20140509, end: 20140510
  12. ABSTRAL [Concomitant]
     Active Substance: FENTANYL CITRATE
     Indication: PAIN
     Route: 065
  13. CISPLATINE TEVA [Suspect]
     Active Substance: CISPLATIN
     Indication: METASTASES TO LUNG
     Dosage: 2ND COURSE
     Route: 042
     Dates: start: 20140314, end: 20140316
  14. AVLOCARDYL [Concomitant]
     Active Substance: PROPRANOLOL HYDROCHLORIDE
     Indication: PRODUCT USED FOR UNKNOWN INDICATION
     Dosage: MORNING
     Route: 048
  15. DUPHALAC [Concomitant]
     Active Substance: LACTULOSE
     Indication: PRODUCT USED FOR UNKNOWN INDICATION
     Dosage: 2 SACHETS, MORNING
     Route: 065
  16. DIFFU K [Concomitant]
     Active Substance: POTASSIUM CHLORIDE
     Indication: PRODUCT USED FOR UNKNOWN INDICATION
     Dosage: MORNING
     Route: 048
  17. DOLIPRANE [Concomitant]
     Active Substance: ACETAMINOPHEN
     Indication: PAIN
     Route: 065
  18. XANAX [Concomitant]
     Active Substance: ALPRAZOLAM
     Indication: PRODUCT USED FOR UNKNOWN INDICATION
     Dosage: IN EVENING
     Route: 048
  19. NEULASTA [Concomitant]
     Active Substance: PEGFILGRASTIM
     Indication: PRODUCT USED FOR UNKNOWN INDICATION
     Dosage: ONE INJECTION, 3 COURSES
     Route: 058
     Dates: start: 2014, end: 2014
  20. HOLOXAN 2000 MG, POUDRE POUR USAGE PARENT?RAL [Suspect]
     Active Substance: IFOSFAMIDE
     Indication: OSTEOSARCOMA METASTATIC
     Dosage: 1ST COURSE
     Route: 042
     Dates: start: 20140221, end: 20140223

REACTIONS (9)
  - Constipation [Unknown]
  - Pancytopenia [Unknown]
  - Deafness [Not Recovered/Not Resolved]
  - Ototoxicity [Not Recovered/Not Resolved]
  - Hypomagnesaemia [Unknown]
  - Hypokalaemia [Unknown]
  - Condition aggravated [Not Recovered/Not Resolved]
  - Encephalopathy [Unknown]
  - Decreased appetite [Unknown]

NARRATIVE: CASE EVENT DATE: 201402
